FAERS Safety Report 15986419 (Version 1)
Quarter: 2019Q1

REPORT INFORMATION
  Report Type: Spontaneous
  Country: CH (occurrence: CH)
  Receive Date: 20190220
  Receipt Date: 20190220
  Transmission Date: 20190418
  Serious: Yes (Other)
  Sender: FDA-Public Use
  Company Number: PHHY2019CH032124

PATIENT

DRUGS (2)
  1. MEKINIST [Suspect]
     Active Substance: TRAMETINIB DIMETHYL SULFOXIDE
     Indication: COLORECTAL CANCER
     Dosage: UNK UKN, UNK
     Route: 065
  2. TAFINLAR [Suspect]
     Active Substance: DABRAFENIB MESYLATE
     Indication: COLORECTAL CANCER
     Dosage: UNK UKN, UNK
     Route: 065

REACTIONS (2)
  - Therapy non-responder [Unknown]
  - Off label use [Unknown]
